FAERS Safety Report 21271989 (Version 5)
Quarter: 2022Q3

REPORT INFORMATION
  Report Type: Report from Study
  Country: CN (occurrence: CN)
  Receive Date: 20220830
  Receipt Date: 20220912
  Transmission Date: 20221026
  Serious: Yes (Death, Hospitalization, Other)
  Sender: FDA-Public Use
  Company Number: CN-ABBVIE-22K-035-4521421-00

PATIENT
  Sex: Male

DRUGS (5)
  1. VENETOCLAX [Suspect]
     Active Substance: VENETOCLAX
     Indication: Acute myeloid leukaemia
     Dosage: DAY 1
     Route: 048
     Dates: start: 20220620, end: 20220620
  2. VENETOCLAX [Suspect]
     Active Substance: VENETOCLAX
     Dosage: DAY 2
     Route: 048
     Dates: start: 20220621, end: 20220621
  3. VENETOCLAX [Suspect]
     Active Substance: VENETOCLAX
     Dosage: DAY 3
     Route: 048
     Dates: start: 20220623, end: 20220623
  4. VENETOCLAX [Suspect]
     Active Substance: VENETOCLAX
     Route: 048
     Dates: start: 2022, end: 20220717
  5. AZACITIDINE [Concomitant]
     Active Substance: AZACITIDINE
     Indication: Acute myeloid leukaemia
     Route: 048
     Dates: start: 20220620, end: 20220626

REACTIONS (9)
  - Cerebral haemorrhage [Fatal]
  - Brain herniation [Fatal]
  - Respiratory failure [Fatal]
  - Circulatory collapse [Fatal]
  - Infection [Recovering/Resolving]
  - Pyrexia [Recovering/Resolving]
  - Pneumonia [Recovering/Resolving]
  - Pancytopenia [Unknown]
  - Anaemia [Unknown]

NARRATIVE: CASE EVENT DATE: 20220816
